FAERS Safety Report 10642704 (Version 1)
Quarter: 2014Q4

REPORT INFORMATION
  Report Type: Spontaneous
  Country: US (occurrence: None)
  Receive Date: 20141121
  Receipt Date: 20141121
  Transmission Date: 20150529
  Serious: No
  Sender: FDA-Public Use
  Company Number: 163-10004-14081015

PATIENT
  Age: 27 Year
  Sex: Male
  Weight: 95.26 kg

DRUGS (2)
  1. OTEZLA [Suspect]
     Active Substance: APREMILAST
     Indication: OFF LABEL USE
     Dosage: STARTER PACK, PO
     Route: 048
     Dates: start: 20140729, end: 20140804
  2. OTEZLA [Suspect]
     Active Substance: APREMILAST
     Indication: ANKYLOSING SPONDYLITIS
     Dosage: STARTER PACK, PO
     Route: 048
     Dates: start: 20140729, end: 20140804

REACTIONS (5)
  - Diarrhoea [None]
  - Off label use [None]
  - Vomiting [None]
  - Nausea [None]
  - Influenza [None]

NARRATIVE: CASE EVENT DATE: 20140729
